FAERS Safety Report 10647912 (Version 2)
Quarter: 2014Q4

REPORT INFORMATION
  Report Type: Spontaneous
  Country: GB (occurrence: GB)
  Receive Date: 20141212
  Receipt Date: 20141212
  Transmission Date: 20150529
  Serious: Yes (Other)
  Sender: FDA-Public Use
  Company Number: GB-ACCORD-027197

PATIENT
  Age: 60 Year
  Sex: Female
  Weight: 67.12 kg

DRUGS (4)
  1. HUMULIN NOS [Concomitant]
     Active Substance: INSULIN HUMAN
     Dosage: REDUCED TO 30 IU WHEN OFF AMLODIPINE
  2. AMLODIPINE [Suspect]
     Active Substance: AMLODIPINE BESYLATE
     Indication: HYPERTENSION
     Route: 048
  3. CANDESARTAN [Concomitant]
     Active Substance: CANDESARTAN
  4. METFORMIN [Concomitant]
     Active Substance: METFORMIN HYDROCHLORIDE

REACTIONS (2)
  - Diabetes mellitus inadequate control [Recovering/Resolving]
  - Blood glucose increased [Recovering/Resolving]

NARRATIVE: CASE EVENT DATE: 201401
